FAERS Safety Report 17609154 (Version 2)
Quarter: 2020Q2

REPORT INFORMATION
  Report Type: Spontaneous
  Country: US (occurrence: US)
  Receive Date: 20200401
  Receipt Date: 20200512
  Transmission Date: 20200713
  Serious: Yes (Other)
  Sender: FDA-Public Use
  Company Number: US-ASTRAZENECA-2020SE36306

PATIENT
  Age: 27 Year
  Sex: Female
  Weight: 117 kg

DRUGS (2)
  1. METFORMIN [Concomitant]
     Active Substance: METFORMIN HYDROCHLORIDE
     Indication: POLYCYSTIC OVARIES
     Dosage: 500.0DF UNKNOWN
     Dates: start: 2020
  2. BYDUREON BCISE [Suspect]
     Active Substance: EXENATIDE
     Indication: POLYCYSTIC OVARIES
     Dosage: UNKNOWN
     Route: 058
     Dates: start: 20191007, end: 20191024

REACTIONS (3)
  - Hyperinsulinaemia [Recovered/Resolved]
  - Injection site rash [Unknown]
  - Off label use [Unknown]
